FAERS Safety Report 24622416 (Version 3)
Quarter: 2024Q4

REPORT INFORMATION
  Report Type: Spontaneous
  Country: US (occurrence: US)
  Receive Date: 20241115
  Receipt Date: 20241229
  Transmission Date: 20250115
  Serious: Yes (Other)
  Sender: ROCHE
  Company Number: US-ROCHE-10000128783

PATIENT
  Sex: Male

DRUGS (6)
  1. OCREVUS [Suspect]
     Active Substance: OCRELIZUMAB
     Indication: Product used for unknown indication
     Route: 065
     Dates: start: 2017, end: 20241010
  2. ELIQUIS [Concomitant]
     Active Substance: APIXABAN
  3. BACLOFEN [Concomitant]
     Active Substance: BACLOFEN
  4. CYMBALTA [Concomitant]
     Active Substance: DULOXETINE HYDROCHLORIDE
  5. VITAMIN B12 [Concomitant]
     Active Substance: CYANOCOBALAMIN
  6. AMANTADINE [Concomitant]
     Active Substance: AMANTADINE

REACTIONS (5)
  - Neoplasm malignant [Unknown]
  - Neck mass [Unknown]
  - Haemoptysis [Unknown]
  - Weight decreased [Unknown]
  - Squamous cell carcinoma [Unknown]
